FAERS Safety Report 9913012 (Version 2)
Quarter: 2016Q2

REPORT INFORMATION
  Report Type: Spontaneous
  Country: GB (occurrence: GB)
  Receive Date: 20140220
  Receipt Date: 20160530
  Transmission Date: 20160815
  Serious: Yes (Other)
  Sender: FDA-Public Use
  Company Number: GB-JNJFOC-20140208332

PATIENT
  Age: 54 Year
  Sex: Female

DRUGS (1)
  1. RISPERDAL CONSTA [Suspect]
     Active Substance: RISPERIDONE
     Indication: PRODUCT USED FOR UNKNOWN INDICATION
     Route: 030
     Dates: start: 1987

REACTIONS (18)
  - Back pain [Unknown]
  - Muscle rigidity [Unknown]
  - Hypoaesthesia [Unknown]
  - Arthritis [Unknown]
  - Cardiovascular disorder [Unknown]
  - Spinal cord injury [Unknown]
  - Abdominal pain upper [Unknown]
  - Mobility decreased [Unknown]
  - Personality change [Unknown]
  - Treatment noncompliance [Unknown]
  - Fatigue [Unknown]
  - Pain in extremity [Unknown]
  - Paraesthesia [Unknown]
  - Mental impairment [Unknown]
  - Nerve compression [Unknown]
  - Exercise tolerance decreased [Unknown]
  - Nerve injury [Unknown]
  - Sensory disturbance [Unknown]
